FAERS Safety Report 25144994 (Version 1)
Quarter: 2025Q2

REPORT INFORMATION
  Report Type: Spontaneous
  Country: JP (occurrence: JP)
  Receive Date: 20250401
  Receipt Date: 20250401
  Transmission Date: 20250716
  Serious: Yes (Other)
  Sender: RIGEL PHARMACEUTICALS
  Company Number: JP-KISSEI-TL20250278_P_1

PATIENT
  Age: 67 Year
  Sex: Female

DRUGS (1)
  1. TAVALISSE [Suspect]
     Active Substance: FOSTAMATINIB
     Indication: Immune thrombocytopenia
     Route: 048
     Dates: start: 20240329

REACTIONS (2)
  - Aortic dissection [Unknown]
  - Hypertension [Unknown]
